FAERS Safety Report 21514750 (Version 1)
Quarter: 2022Q4

REPORT INFORMATION
  Report Type: Spontaneous
  Country: US (occurrence: US)
  Receive Date: 20221027
  Receipt Date: 20221027
  Transmission Date: 20230112
  Serious: Yes (Other)
  Sender: FDA-Public Use
  Company Number: US-PFIZER INC-PV202200089811

PATIENT
  Age: 72 Year
  Sex: Female

DRUGS (1)
  1. MYCOBUTIN [Suspect]
     Active Substance: RIFABUTIN
     Dosage: UNK

REACTIONS (2)
  - Parkinson^s disease [Unknown]
  - Mobility decreased [Unknown]
